FAERS Safety Report 18177560 (Version 6)
Quarter: 2021Q2

REPORT INFORMATION
  Report Type: Spontaneous
  Country: US (occurrence: US)
  Receive Date: 20200820
  Receipt Date: 20210519
  Transmission Date: 20210717
  Serious: No
  Sender: FDA-Public Use
  Company Number: US-PFIZER INC-2020319647

PATIENT
  Age: 53 Year
  Sex: Female
  Weight: 108.86 kg

DRUGS (2)
  1. IBRANCE [Suspect]
     Active Substance: PALBOCICLIB
     Indication: BREAST CANCER FEMALE
     Dosage: 125 MG, CYCLIC (FOR 21 DAYS, FOLLLOWED BY 7 DAYS O REST, REPETAED EVERY 28 DAYS)
     Route: 048
     Dates: start: 20200803
  2. GLIPIZIDE. [Concomitant]
     Active Substance: GLIPIZIDE
     Dosage: UNK

REACTIONS (6)
  - Epistaxis [Unknown]
  - Mass [Unknown]
  - Urine ketone body present [Unknown]
  - Swelling [Unknown]
  - Product dose omission in error [Unknown]
  - Neck mass [Unknown]

NARRATIVE: CASE EVENT DATE: 2020
